FAERS Safety Report 4360088-3 (Version None)
Quarter: 2004Q2

REPORT INFORMATION
  Report Type: 
  Country: None (occurrence: None)
  Receive Date: 20040519
  Receipt Date: 20040506
  Transmission Date: 20050107
  Serious: Yes (Death, Hospitalization)
  Sender: FDA-Public Use
  Company Number: JP-JNJFOC-20040501729

PATIENT
  Sex: Female

DRUGS (16)
  1. MICONAZOLE [Suspect]
     Indication: NAIL TINEA
     Route: 042
     Dates: start: 20000925, end: 20001009
  2. LOXOPROFEN SODIUM [Suspect]
     Indication: POLYARTHRITIS
     Route: 049
     Dates: start: 20000928, end: 20001009
  3. SULINDAC [Suspect]
     Indication: POLYARTHRITIS
     Route: 049
     Dates: start: 20001013, end: 20001027
  4. PREDNISOLONE [Concomitant]
     Route: 049
  5. PREDNISOLONE [Concomitant]
     Route: 049
  6. PREDNISOLONE [Concomitant]
     Indication: RHEUMATOID ARTHRITIS
     Route: 049
  7. ACEMETACIN [Concomitant]
     Indication: RHEUMATOID ARTHRITIS
     Route: 065
     Dates: start: 19960101, end: 20000923
  8. D-PENICILLAMINE [Concomitant]
     Indication: RHEUMATOID ARTHRITIS
     Route: 065
  9. CETRAXATE HYDROCHLORIDE [Concomitant]
     Indication: GASTRITIS
     Route: 065
     Dates: start: 19960101, end: 20000923
  10. DIPYRIDAMOLE [Concomitant]
     Indication: HAEMATURIA
     Route: 065
     Dates: start: 19981026, end: 20000923
  11. METHOTREXATE [Concomitant]
     Dosage: DOSE INCREASED IN AUG-2000 FROM 2 CAPSULES TO 3 CAPSULES
     Route: 065
     Dates: start: 20000501, end: 20000923
  12. INDOMETACIN FARNESIL [Concomitant]
     Route: 065
     Dates: start: 20000501, end: 20000923
  13. ASPOXICILLIN [Concomitant]
     Route: 065
     Dates: start: 20000924, end: 20001009
  14. NORFLOXACIN [Concomitant]
     Route: 049
     Dates: start: 20001018, end: 20001025
  15. ULINASTATIN [Concomitant]
     Route: 065
  16. S-SULFONATED HUMAN IMMUNOGLOBULIN [Concomitant]
     Route: 065

REACTIONS (8)
  - ALANINE AMINOTRANSFERASE INCREASED [None]
  - ASPARTATE AMINOTRANSFERASE INCREASED [None]
  - COLITIS [None]
  - HEPATIC FUNCTION ABNORMAL [None]
  - MULTI-ORGAN FAILURE [None]
  - PANCREATITIS ACUTE [None]
  - RASH ERYTHEMATOUS [None]
  - STEVENS-JOHNSON SYNDROME [None]
